FAERS Safety Report 5733054-0 (Version None)
Quarter: 2008Q2

REPORT INFORMATION
  Report Type: 
  Country: None (occurrence: None)
  Receive Date: 20080509
  Receipt Date: 20080417
  Transmission Date: 20081010
  Serious: Yes (Hospitalization)
  Sender: FDA-Public Use
  Company Number: US-BAYER-200820197NA

PATIENT
  Age: 77 Year
  Sex: Female

DRUGS (1)
  1. BETAPACE [Suspect]
     Indication: DRUG USE FOR UNKNOWN INDICATION
     Dates: end: 20080301

REACTIONS (4)
  - ABASIA [None]
  - ASTHENIA [None]
  - CARDIAC DISORDER [None]
  - MENTAL IMPAIRMENT [None]
